FAERS Safety Report 22599959 (Version 1)
Quarter: 2023Q2

REPORT INFORMATION
  Report Type: Spontaneous
  Country: FR (occurrence: None)
  Receive Date: 20230614
  Receipt Date: 20230614
  Transmission Date: 20230722
  Serious: Yes (Hospitalization)
  Sender: FDA-Public Use
  Company Number: 2023A130629

PATIENT
  Sex: Male

DRUGS (6)
  1. QUETIAPINE FUMARATE [Suspect]
     Active Substance: QUETIAPINE FUMARATE
  2. ZOPICLONE [Suspect]
     Active Substance: ZOPICLONE
  3. PREGABALIN [Suspect]
     Active Substance: PREGABALIN
  4. ACETAMINOPHEN\BELLADONNA LEAF\CAFFEINE\OPIUM [Suspect]
     Active Substance: ACETAMINOPHEN\BELLADONNA LEAF\CAFFEINE\OPIUM
  5. OXAZEPAM [Suspect]
     Active Substance: OXAZEPAM
  6. NORDAZEPAM [Suspect]
     Active Substance: NORDAZEPAM

REACTIONS (6)
  - Pneumonia aspiration [Recovered/Resolved]
  - Poisoning [Unknown]
  - Drug abuse [Unknown]
  - Bladder dilatation [Recovered/Resolved]
  - Altered state of consciousness [Recovered/Resolved]
  - Miosis [Recovered/Resolved]

NARRATIVE: CASE EVENT DATE: 20221211
